FAERS Safety Report 20774610 (Version 1)
Quarter: 2022Q2

REPORT INFORMATION
  Report Type: Spontaneous
  Country: US (occurrence: US)
  Receive Date: 20220502
  Receipt Date: 20220502
  Transmission Date: 20220720
  Serious: No
  Sender: FDA-Public Use
  Company Number: US-ABBVIE-22K-163-4281847-00

PATIENT
  Age: 79 Year

DRUGS (1)
  1. CREON [Suspect]
     Active Substance: PANCRELIPASE AMYLASE\PANCRELIPASE LIPASE\PANCRELIPASE PROTEASE
     Indication: Pancreatic failure
     Dosage: 1 WITH EACH MEAL
     Route: 048

REACTIONS (3)
  - Visual impairment [Unknown]
  - Skin discharge [Unknown]
  - Unevaluable event [Unknown]
